FAERS Safety Report 8085874-8 (Version None)
Quarter: 2012Q1

REPORT INFORMATION
  Report Type: 
  Country: None (occurrence: None)
  Receive Date: 20120128
  Receipt Date: 20110419
  Transmission Date: 20120608
  Serious: No
  Sender: FDA-Public Use
  Company Number: US-ABBOTT-11P-163-0720504-00

PATIENT
  Weight: 79.45 kg

DRUGS (4)
  1. SENTINEL PATCH [Concomitant]
     Indication: PAIN
  2. HUMIRA [Suspect]
     Indication: PSORIASIS
     Dates: start: 20110301
  3. TEMAZEPAM [Concomitant]
     Indication: INSOMNIA
  4. OMEPRAZOLE [Concomitant]
     Indication: GASTROOESOPHAGEAL REFLUX DISEASE

REACTIONS (1)
  - PSORIASIS [None]
